FAERS Safety Report 23321959 (Version 2)
Quarter: 2023Q4

REPORT INFORMATION
  Report Type: Spontaneous
  Country: BR (occurrence: BR)
  Receive Date: 20231220
  Receipt Date: 20231227
  Transmission Date: 20240109
  Serious: Yes (Hospitalization)
  Sender: FDA-Public Use
  Company Number: BR-GE HEALTHCARE-2023CSU011652

PATIENT
  Age: 41 Year
  Sex: Female
  Weight: 75 kg

DRUGS (2)
  1. OMNIPAQUE [Suspect]
     Active Substance: IOHEXOL
     Indication: Computerised tomogram abdomen
     Dosage: 75 ML, SINGLE
     Route: 042
     Dates: start: 20231206, end: 20231206
  2. OMNIPAQUE [Suspect]
     Active Substance: IOHEXOL
     Indication: Appendicitis

REACTIONS (6)
  - Dehydration [Not Recovered/Not Resolved]
  - Hypotension [Unknown]
  - Tremor [Recovering/Resolving]
  - Vomiting [Recovering/Resolving]
  - Diarrhoea [Recovering/Resolving]
  - Hyperhidrosis [Recovering/Resolving]

NARRATIVE: CASE EVENT DATE: 20231206
